FAERS Safety Report 13914513 (Version 1)
Quarter: 2017Q3

REPORT INFORMATION
  Report Type: Spontaneous
  Country: US (occurrence: US)
  Receive Date: 20170828
  Receipt Date: 20170828
  Transmission Date: 20171127
  Serious: Yes (Death, Other)
  Sender: FDA-Public Use
  Company Number: US-IMPAX LABORATORIES, INC-2017-IPXL-02488

PATIENT
  Age: 31 Year
  Sex: Female

DRUGS (1)
  1. BUPROPION HYDROCHLORIDE SR [Suspect]
     Active Substance: BUPROPION HYDROCHLORIDE
     Indication: DEPRESSION
     Dosage: 13 G, UNK
     Route: 065

REACTIONS (6)
  - Overdose [Fatal]
  - Circulatory collapse [Fatal]
  - Aphasia [Unknown]
  - Ventricular tachycardia [Unknown]
  - Shock [Unknown]
  - Status epilepticus [Unknown]
